FAERS Safety Report 4439369-0 (Version None)
Quarter: 2004Q3

REPORT INFORMATION
  Report Type: 
  Country: None (occurrence: None)
  Receive Date: 20040831
  Receipt Date: 20040816
  Transmission Date: 20050211
  Serious: Yes (Death, Hospitalization)
  Sender: FDA-Public Use
  Company Number: 2003-06006

PATIENT
  Age: 46 Year
  Sex: Male

DRUGS (4)
  1. HEPSERA [Suspect]
     Indication: HEPATITIS B
     Dosage: 10 MG, ONCE A DAY, ORAL
     Route: 048
     Dates: start: 20030401
  2. OMEPRAZOLE (OMEPRAZOLE0 [Concomitant]
  3. AMBIEN [Concomitant]
  4. ZOSYN [Concomitant]

REACTIONS (5)
  - CONDITION AGGRAVATED [None]
  - HEPATIC CIRRHOSIS [None]
  - HEPATIC FAILURE [None]
  - HEPATITIS B [None]
  - PRURITUS [None]
